FAERS Safety Report 17471346 (Version 20)
Quarter: 2023Q2

REPORT INFORMATION
  Report Type: Report from Study
  Country: US (occurrence: US)
  Receive Date: 20200227
  Receipt Date: 20230621
  Transmission Date: 20230721
  Serious: Yes (Death, Hospitalization, Other)
  Sender: FDA-Public Use
  Company Number: US-AKCEA THERAPEUTICS-2020IS001082

PATIENT

DRUGS (7)
  1. TEGSEDI [Suspect]
     Active Substance: INOTERSEN SODIUM
     Indication: Hereditary neuropathic amyloidosis
     Dosage: 284 MG, QW
     Route: 058
  2. TEGSEDI [Suspect]
     Active Substance: INOTERSEN SODIUM
     Dosage: 284 MG, QW
     Route: 058
     Dates: start: 20190805
  3. LYRICA [Concomitant]
     Active Substance: PREGABALIN
     Indication: Product used for unknown indication
     Dosage: 300 MILLIGRAM
     Route: 065
  4. POTASSIUM CHLORIDE [Concomitant]
     Active Substance: POTASSIUM CHLORIDE
     Indication: Product used for unknown indication
     Dosage: 20 MILLIEQUIVALENT TABLET ER
     Route: 065
  5. FUROSEMIDE [Concomitant]
     Active Substance: FUROSEMIDE
     Indication: Product used for unknown indication
     Dosage: 10 MG/ML VIAL
     Route: 065
  6. DULOXETINE HYDROCHLORIDE [Concomitant]
     Active Substance: DULOXETINE HYDROCHLORIDE
     Indication: Product used for unknown indication
     Dosage: 30 MILLIGRAM CAPSULE DR
     Route: 065
  7. ACETAMINOPHEN\CODEINE PHOSPHATE [Concomitant]
     Active Substance: ACETAMINOPHEN\CODEINE PHOSPHATE
     Indication: Product used for unknown indication
     Route: 065

REACTIONS (33)
  - Death [Fatal]
  - Deep vein thrombosis [Not Recovered/Not Resolved]
  - Fall [Unknown]
  - Ankle fracture [Unknown]
  - Tibia fracture [Not Recovered/Not Resolved]
  - Fibula fracture [Not Recovered/Not Resolved]
  - Infection [Unknown]
  - Limb injury [Not Recovered/Not Resolved]
  - Urinary occult blood positive [Not Recovered/Not Resolved]
  - Atrial fibrillation [Unknown]
  - Blood sodium decreased [Not Recovered/Not Resolved]
  - Blood calcium decreased [Not Recovered/Not Resolved]
  - Heart rate irregular [Not Recovered/Not Resolved]
  - Hyperhidrosis [Not Recovered/Not Resolved]
  - Urine protein/creatinine ratio increased [Not Recovered/Not Resolved]
  - Platelet count decreased [Unknown]
  - Nitrite urine present [Not Recovered/Not Resolved]
  - Bacterial test positive [Unknown]
  - Protein urine present [Unknown]
  - Poor venous access [Unknown]
  - Crystal urine present [Unknown]
  - Urinary casts [Unknown]
  - Urine abnormality [Unknown]
  - Alanine aminotransferase abnormal [Not Recovered/Not Resolved]
  - Fungal test positive [Not Recovered/Not Resolved]
  - Blood creatinine decreased [Unknown]
  - Poor venous access [Unknown]
  - Urine leukocyte esterase positive [Unknown]
  - White blood cells urine positive [Unknown]
  - Red blood cells urine positive [Unknown]
  - Urine ketone body present [Unknown]
  - Urinary sediment present [Unknown]
  - pH urine increased [Unknown]

NARRATIVE: CASE EVENT DATE: 20200216
